FAERS Safety Report 8271408-1 (Version None)
Quarter: 2012Q2

REPORT INFORMATION
  Report Type: 
  Country: None (occurrence: None)
  Receive Date: 20120410
  Receipt Date: 20120328
  Transmission Date: 20120825
  Serious: Yes (Congenital Anomaly)
  Sender: FDA-Public Use
  Company Number: PHHY2012DE028189

PATIENT
  Age: 28 Day
  Sex: Male
  Weight: 3.41 kg

DRUGS (5)
  1. LAMICTAL [Suspect]
     Dosage: 550 MG, PER DAY
     Route: 064
     Dates: start: 20100101, end: 20100411
  2. FOLSAN [Concomitant]
     Indication: PROPHYLAXIS OF NEURAL TUBE DEFECT
     Dosage: 5 MG, PER DAY
     Route: 064
     Dates: start: 20090630, end: 20100324
  3. OXCARBAZEPINE [Suspect]
     Dosage: 1800 MG, PER DAY
     Route: 064
     Dates: start: 20100101, end: 20100411
  4. LAMICTAL [Suspect]
     Indication: EPILEPSY
     Dosage: 300 MG, BID
     Route: 064
     Dates: start: 20090630, end: 20100101
  5. OXCARBAZEPINE [Suspect]
     Indication: EPILEPSY
     Dosage: 2100 MG (900-300-900), PER DAY
     Route: 064
     Dates: start: 20090630, end: 20100101

REACTIONS (4)
  - VENTRICULAR SEPTAL DEFECT [None]
  - CONGENITAL PULMONARY HYPERTENSION [None]
  - ATRIAL SEPTAL DEFECT [None]
  - FOETAL EXPOSURE DURING PREGNANCY [None]
